FAERS Safety Report 24582496 (Version 1)
Quarter: 2024Q4

REPORT INFORMATION
  Report Type: Spontaneous
  Country: CN (occurrence: CN)
  Receive Date: 20241106
  Receipt Date: 20241106
  Transmission Date: 20250114
  Serious: Yes (Other)
  Sender: BEIGENE
  Company Number: CN-BEIGENE-BGN-2023-000800

PATIENT

DRUGS (8)
  1. BRUKINSA [Suspect]
     Active Substance: ZANUBRUTINIB
     Indication: Lymphodepletion
     Dosage: UNK
  2. BRUKINSA [Suspect]
     Active Substance: ZANUBRUTINIB
     Indication: Non-Hodgkin^s lymphoma
  3. CYCLOPHOSPHAMIDE [Suspect]
     Active Substance: CYCLOPHOSPHAMIDE
     Indication: Lymphodepletion
     Dosage: UNK
  4. CYCLOPHOSPHAMIDE [Suspect]
     Active Substance: CYCLOPHOSPHAMIDE
     Indication: Non-Hodgkin^s lymphoma
  5. FLUDARABINE PHOSPHATE [Suspect]
     Active Substance: FLUDARABINE PHOSPHATE
     Indication: Lymphodepletion
     Dosage: UNK
  6. FLUDARABINE PHOSPHATE [Suspect]
     Active Substance: FLUDARABINE PHOSPHATE
     Indication: Non-Hodgkin^s lymphoma
  7. AXICABTAGENE CILOLEUCEL [Suspect]
     Active Substance: AXICABTAGENE CILOLEUCEL
     Indication: Lymphodepletion
     Dosage: UNK
  8. AXICABTAGENE CILOLEUCEL [Suspect]
     Active Substance: AXICABTAGENE CILOLEUCEL
     Indication: Non-Hodgkin^s lymphoma

REACTIONS (30)
  - Systemic inflammatory response syndrome [Unknown]
  - Cytokine release syndrome [Unknown]
  - Hypokalaemia [Unknown]
  - Pneumonia [Unknown]
  - Anaemia [Unknown]
  - Lymphocyte count decreased [Unknown]
  - Hypophosphataemia [Unknown]
  - Gamma-glutamyltransferase increased [Unknown]
  - Oedema peripheral [Unknown]
  - Neutrophil count decreased [Unknown]
  - White blood cell count decreased [Unknown]
  - N-terminal prohormone brain natriuretic peptide increased [Unknown]
  - Asthenia [Unknown]
  - C-reactive protein increased [Unknown]
  - Hypoalbuminaemia [Unknown]
  - Skin lesion [Unknown]
  - Hypomagnesaemia [Unknown]
  - Chest discomfort [Unknown]
  - Cytokine increased [Unknown]
  - Rash [Unknown]
  - Platelet count decreased [Unknown]
  - COVID-19 [Unknown]
  - Neuralgia [Unknown]
  - Herpes zoster [Unknown]
  - Blood immunoglobulin G decreased [Unknown]
  - Hypocalcaemia [Unknown]
  - Aspartate aminotransferase increased [Unknown]
  - Productive cough [Unknown]
  - Cough [Unknown]
  - Off label use [Unknown]

NARRATIVE: CASE EVENT DATE: 20221128
